FAERS Safety Report 20351030 (Version 1)
Quarter: 2022Q1

REPORT INFORMATION
  Report Type: Spontaneous
  Country: US (occurrence: None)
  Receive Date: 20220118
  Receipt Date: 20220118
  Transmission Date: 20220423
  Serious: Yes (Hospitalization)
  Sender: FDA-Public Use
  Company Number: None

PATIENT
  Age: 62 Year
  Sex: Female

DRUGS (19)
  1. CASIRIVIMAB\IMDEVIMAB [Suspect]
     Active Substance: CASIRIVIMAB\IMDEVIMAB
     Indication: COVID-19
     Dosage: OTHER FREQUENCY : ONCE;?
     Route: 058
     Dates: start: 20220104, end: 20220104
  2. APIXaban (Eliquis) 5 mg tablet [Concomitant]
  3. cholecalciferol (VITAMIN D3) 25 mcg (1,000 unit) capsule [Concomitant]
  4. diphenhydrAMINE (BENADRYL) 25 mg tablet [Concomitant]
  5. fexofenadine (ALLEGRA) 180 mg tablet [Concomitant]
  6. HYDROmorphone (DILAUDID) 4 mg tablet (C-II) [Concomitant]
  7. lacosamide (VIMPAT) 100 mg tablet tablet (C-V) [Concomitant]
  8. levothyroxine (SYNTHROID) 75 mcg tablet [Concomitant]
  9. melatonin 3 mg capsule [Concomitant]
  10. pantoprazole (PROTONIX) 40 mg EC tablet [Concomitant]
  11. PARoxetine (PAXIL) 10 mg tablet [Concomitant]
  12. rOPINIRole (REQUIP) 1 mg tablet [Concomitant]
  13. traZOdone (Desyrel) 50 mg tablet [Concomitant]
  14. ARIPiprazole (ABILIFY) 2 mg tablet [Concomitant]
  15. atorvastatin (LIPITOR) 40 mg tablet [Concomitant]
  16. bisoprolol (ZEBETA) 10 mg tablet [Concomitant]
  17. isosorbide mononitrate ER (IMDUR) 30 mg 24 hr tablet [Concomitant]
  18. sacubitriL-valsartan (Entresto) 24-26 mg tablet [Concomitant]
  19. zolpidem (AMBIEN) 10 mg tablet (C-IV) [Concomitant]

REACTIONS (3)
  - Blood potassium decreased [None]
  - Blood lactic acid abnormal [None]
  - Lung infiltration [None]

NARRATIVE: CASE EVENT DATE: 20220105
